FAERS Safety Report 22148170 (Version 1)
Quarter: 2023Q1

REPORT INFORMATION
  Report Type: Spontaneous
  Country: US (occurrence: US)
  Receive Date: 20230328
  Receipt Date: 20230328
  Transmission Date: 20230417
  Serious: No
  Sender: FDA-Public Use
  Company Number: US-BRISTOL-MYERS SQUIBB COMPANY-2023-044472

PATIENT
  Age: 77 Year
  Sex: Male
  Weight: 102.06 kg

DRUGS (1)
  1. THALOMID [Suspect]
     Active Substance: THALIDOMIDE
     Indication: Plasma cell myeloma
     Dosage: FREQUENCY-DAILY
     Route: 048

REACTIONS (3)
  - Tremor [Unknown]
  - Coronavirus infection [Recovering/Resolving]
  - Seasonal allergy [Unknown]
